FAERS Safety Report 9721455 (Version 2)
Quarter: 2014Q2

REPORT INFORMATION
  Report Type: Report from Study
  Country: JP (occurrence: JP)
  Receive Date: 20131129
  Receipt Date: 20140422
  Transmission Date: 20141212
  Serious: Yes (Hospitalization, Other)
  Sender: FDA-Public Use
  Company Number: JP-TAKEDA-2013TUS002691

PATIENT
  Age: 40 Year
  Sex: Male
  Weight: 123 kg

DRUGS (14)
  1. FEBURIC [Suspect]
     Indication: HYPERURICAEMIA
     Dosage: 10 MG, QD
     Route: 048
     Dates: start: 20121005
  2. ARTIST [Concomitant]
     Dosage: 7.5 MG, QD
     Route: 048
     Dates: end: 20121204
  3. ARTIST [Concomitant]
     Dosage: 10 MG, QD
     Dates: start: 20121205, end: 20130212
  4. ARTIST [Concomitant]
     Dosage: 20 MG, QD
     Dates: start: 20130213
  5. AMIODARONE HYDROCHLORIDE [Concomitant]
     Dosage: 200 MG, QD
     Route: 048
     Dates: start: 20121005
  6. GOODMIN [Concomitant]
     Dosage: UNK
     Route: 048
     Dates: end: 20130508
  7. DIART [Concomitant]
     Dosage: 60 MG, QD
     Route: 048
  8. DIOVAN [Concomitant]
     Dosage: 80 MG, QD
     Route: 048
  9. NORVASC [Concomitant]
     Dosage: 5 MG, QD
     Route: 048
  10. WARFARIN [Concomitant]
     Dosage: 2 MG, QD
     Route: 048
     Dates: end: 20130212
  11. WARFARIN [Concomitant]
     Dosage: 2.5 MG, QD
     Route: 048
     Dates: start: 20130213, end: 20130312
  12. WARFARIN [Concomitant]
     Dosage: 2 MG, QD
     Route: 048
     Dates: start: 20130313, end: 20130918
  13. WARFARIN [Concomitant]
     Dosage: 1.5 MG, QD
     Route: 048
     Dates: start: 20130919
  14. BEZAFIBRATE [Concomitant]
     Dosage: 400 MG, QD
     Route: 048

REACTIONS (1)
  - Cardiac failure [Recovering/Resolving]
